FAERS Safety Report 6661678-5 (Version None)
Quarter: 2010Q1

REPORT INFORMATION
  Report Type: 
  Country: None (occurrence: None)
  Receive Date: 20100331
  Receipt Date: 20090408
  Transmission Date: 20100710
  Serious: No
  Sender: FDA-Public Use
  Company Number: US-BRISTOL-MYERS SQUIBB COMPANY-14580302

PATIENT
  Age: 75 Year
  Sex: Male

DRUGS (3)
  1. ERBITUX [Suspect]
     Indication: COLORECTAL CANCER
     Dates: start: 20081231
  2. IRINOTECAN HCL [Concomitant]
  3. DOXYCYCLINE [Concomitant]

REACTIONS (1)
  - RASH [None]
